FAERS Safety Report 7985444-3 (Version None)
Quarter: 2011Q4

REPORT INFORMATION
  Report Type: 
  Country: None (occurrence: None)
  Receive Date: 20111214
  Receipt Date: 20111129
  Transmission Date: 20120403
  Serious: Yes (Other)
  Sender: FDA-Public Use
  Company Number: B0767815A

PATIENT
  Age: 56 Year
  Sex: Female

DRUGS (3)
  1. FLUTICASONE PROPIONATE [Suspect]
     Indication: PRODUCT USED FOR UNKNOWN INDICATION
     Dosage: INHALED
     Route: 055
  2. CORTICOSTEROID (FORMULATION UNKNOWN) (CORTICOSTEROID) (GENERIC) [Suspect]
     Indication: CHRONIC OBSTRUCTIVE PULMONARY DISEASE
     Dosage: ORAL
     Route: 048
  3. NYSTATIN [Concomitant]

REACTIONS (1)
  - BRONCHOPULMONARY ASPERGILLOSIS ALLERGIC [None]
